FAERS Safety Report 15335807 (Version 1)
Quarter: 2018Q3

REPORT INFORMATION
  Report Type: Spontaneous
  Country: US (occurrence: US)
  Receive Date: 20180827
  Receipt Date: 20180827
  Transmission Date: 20181010
  Serious: Yes (Hospitalization)
  Sender: FDA-Public Use
  Company Number: None

PATIENT
  Sex: Male

DRUGS (2)
  1. CENTRUM VITAMIN [Concomitant]
  2. SEROQUEL [Suspect]
     Active Substance: QUETIAPINE FUMARATE
     Indication: BIPOLAR DISORDER
     Dates: start: 20180811, end: 20180827

REACTIONS (4)
  - Urticaria [None]
  - Agitation [None]
  - Rash [None]
  - Hypertension [None]

NARRATIVE: CASE EVENT DATE: 20180814
